FAERS Safety Report 9179538 (Version 1)
Quarter: 2012Q4

REPORT INFORMATION
  Report Type: 
  Country: US (occurrence: US)
  Receive Date: 20121029
  Receipt Date: 20121029
  Transmission Date: 20130627
  Serious: Yes (Hospitalization)
  Sender: FDA-Public Use
  Company Number: US-B.I. PHARMACEUTICALS,INC./RIDGEFIELD-2012-BP-26486BP

PATIENT
  Age: 62 None
  Sex: Female
  Weight: 50 kg

DRUGS (2)
  1. SPIRIVA [Suspect]
     Indication: EMPHYSEMA
     Dosage: 18 mcg
     Route: 055
     Dates: start: 2005
  2. COZAAR [Concomitant]
     Indication: HYPERTENSION
     Dosage: 100 mg
     Route: 048

REACTIONS (8)
  - Pneumonia [Recovered/Resolved]
  - Weight increased [Not Recovered/Not Resolved]
  - Exercise lack of [Not Recovered/Not Resolved]
  - Dyspnoea [Not Recovered/Not Resolved]
  - Pulmonary mass [Not Recovered/Not Resolved]
  - Dyspnoea [Recovered/Resolved]
  - Chest discomfort [Recovered/Resolved]
  - Product quality issue [Recovered/Resolved]
